FAERS Safety Report 14476129 (Version 2)
Quarter: 2018Q1

REPORT INFORMATION
  Report Type: Spontaneous
  Country: US (occurrence: US)
  Receive Date: 20180201
  Receipt Date: 20180214
  Transmission Date: 20180509
  Serious: Yes (Life-Threatening, Hospitalization)
  Sender: FDA-Public Use
  Company Number: US-TEVA-2018-US-853853

PATIENT
  Age: 6 Month
  Sex: Female

DRUGS (1)
  1. LAMICTAL [Suspect]
     Active Substance: LAMOTRIGINE
     Indication: ACCIDENTAL OVERDOSE
     Dosage: ABOUT 5 TO 10 LAMOTRIGINE PILLS APPEARED TO HAVE BEEN ^SUCKED^ ON BY CHILD ACCIDENTALLY
     Route: 048

REACTIONS (4)
  - Status epilepticus [Recovered/Resolved]
  - Accidental overdose [Recovering/Resolving]
  - Accidental exposure to product by child [Recovering/Resolving]
  - Hypotension [Unknown]
